FAERS Safety Report 16531505 (Version 1)
Quarter: 2019Q3

REPORT INFORMATION
  Report Type: Spontaneous
  Country: US (occurrence: US)
  Receive Date: 20190703
  Receipt Date: 20190703
  Transmission Date: 20191004
  Serious: Yes (Hospitalization)
  Sender: FDA-Public Use
  Company Number: None

PATIENT
  Age: 51 Year
  Sex: Female
  Weight: 56.25 kg

DRUGS (1)
  1. TRAZODONE [Suspect]
     Active Substance: TRAZODONE HYDROCHLORIDE
     Indication: INSOMNIA
     Route: 048
     Dates: start: 20190425, end: 20190520

REACTIONS (15)
  - Insomnia [None]
  - Anxiety [None]
  - Mood altered [None]
  - Confusional state [None]
  - Menopause [None]
  - Thinking abnormal [None]
  - Night sweats [None]
  - Abnormal behaviour [None]
  - Hallucination [None]
  - Mydriasis [None]
  - Hypomania [None]
  - Drug ineffective [None]
  - Paranoia [None]
  - Drug interaction [None]
  - Urinary tract infection [None]

NARRATIVE: CASE EVENT DATE: 20190521
